FAERS Safety Report 5394257-0 (Version None)
Quarter: 2007Q3

REPORT INFORMATION
  Report Type: 
  Country: None (occurrence: None)
  Receive Date: 20070723
  Receipt Date: 20070522
  Transmission Date: 20080115
  Serious: No
  Sender: FDA-Public Use
  Company Number: A0652335A

PATIENT
  Sex: Female

DRUGS (8)
  1. AVANDIA [Suspect]
     Dosage: 4MG PER DAY
     Route: 048
  2. FUROSEMIDE INTENSOL [Concomitant]
  3. LEXAPRO [Concomitant]
  4. COREG [Concomitant]
  5. CADUET [Concomitant]
  6. UNSPECIFIED MEDICATION [Concomitant]
     Route: 048
  7. IRON [Concomitant]
  8. ASPIRIN [Concomitant]

REACTIONS (1)
  - OEDEMA PERIPHERAL [None]
